FAERS Safety Report 21837976 (Version 1)
Quarter: 2023Q1

REPORT INFORMATION
  Report Type: Report from Study
  Country: US (occurrence: US)
  Receive Date: 20230109
  Receipt Date: 20230109
  Transmission Date: 20230418
  Serious: Yes (Other)
  Sender: FDA-Public Use
  Company Number: US-BAYER-2022A142427

PATIENT
  Age: 62 Year
  Sex: Female

DRUGS (2)
  1. STIVARGA [Suspect]
     Active Substance: REGORAFENIB
     Indication: Colon cancer
     Dosage: 160 MG QD 21 DAYS ON, 7 DAYS OFF
     Dates: start: 20220921
  2. STIVARGA [Suspect]
     Active Substance: REGORAFENIB
     Indication: Colon cancer
     Dosage: 120 MG, QD FOR 21 DAYS ON, THEN 7 DAYS OFF, FOR A 28 DAY CYCLE
     Dates: start: 20221031

REACTIONS (8)
  - Blood magnesium decreased [Unknown]
  - Oral pain [None]
  - Stomatitis [Recovered/Resolved]
  - Vitamin D decreased [Unknown]
  - Blood potassium decreased [Unknown]
  - Product dose omission issue [Unknown]
  - Oral pain [Unknown]
  - Blister [Unknown]
